FAERS Safety Report 18102476 (Version 3)
Quarter: 2020Q3

REPORT INFORMATION
  Report Type: Other
  Country: AR (occurrence: AR)
  Receive Date: 20200803
  Receipt Date: 20200903
  Transmission Date: 20201103
  Serious: Yes (Hospitalization, Other)
  Sender: FDA-Public Use
  Company Number: AR-ROCHE-2651068

PATIENT
  Age: 44 Year
  Sex: Female

DRUGS (1)
  1. TECENTRIQ [Suspect]
     Active Substance: ATEZOLIZUMAB
     Indication: TRIPLE NEGATIVE BREAST CANCER
     Dosage: DOSE AND FREQUENCY ARE UNKNOWN
     Route: 042
     Dates: start: 20200708

REACTIONS (3)
  - Headache [Recovered/Resolved]
  - Vomiting [Recovered/Resolved]
  - Neoplasm progression [Unknown]

NARRATIVE: CASE EVENT DATE: 20200709
